FAERS Safety Report 24901707 (Version 1)
Quarter: 2025Q1

REPORT INFORMATION
  Report Type: Spontaneous
  Country: US (occurrence: US)
  Receive Date: 20250129
  Receipt Date: 20250129
  Transmission Date: 20250408
  Serious: No
  Sender: SANOFI AVENTIS
  Company Number: US-SA-2025SA026891

PATIENT
  Sex: Male
  Weight: 69.09 kg

DRUGS (7)
  1. DUPIXENT [Suspect]
     Active Substance: DUPILUMAB
     Indication: Dermatitis atopic
     Route: 058
  2. DUPIXENT [Suspect]
     Active Substance: DUPILUMAB
     Dosage: 300 MG, QOW
     Route: 058
  3. UBRELVY [Concomitant]
     Active Substance: UBROGEPANT
  4. ALFUZOSIN [Concomitant]
     Active Substance: ALFUZOSIN
  5. MELOXICAM [Concomitant]
     Active Substance: MELOXICAM
  6. QULIPTA [Concomitant]
     Active Substance: ATOGEPANT
  7. MONTELUKAST SODIUM [Concomitant]
     Active Substance: MONTELUKAST SODIUM

REACTIONS (1)
  - Drug hypersensitivity [Unknown]
